FAERS Safety Report 4340180-X (Version None)
Quarter: 2004Q1

REPORT INFORMATION
  Report Type: 
  Country: None (occurrence: None)
  Receive Date: 20040329
  Receipt Date: 20040128
  Transmission Date: 20041129
  Serious: No
  Sender: FDA-Public Use
  Company Number: 04P-163-0249111-00

PATIENT
  Age: 73 Year
  Sex: Female
  Weight: 92.5338 kg

DRUGS (5)
  1. HUMIRA [Suspect]
     Indication: RHEUMATOID ARTHRITIS
     Dosage: 40 MG, 1 IN 2 WK, SUBCUTANEOUS
     Route: 058
     Dates: start: 20030201
  2. CELECOXIB [Concomitant]
  3. DYAZIDE [Concomitant]
  4. DOXAZOSIN MESYLATE [Concomitant]
  5. METOPROLOL SUCCINATE [Concomitant]

REACTIONS (2)
  - SMEAR CERVIX ABNORMAL [None]
  - VAGINAL INFECTION [None]
